APPROVED DRUG PRODUCT: CHILDREN'S CETIRIZINE HYDROCHLORIDE ALLERGY
Active Ingredient: CETIRIZINE HYDROCHLORIDE
Strength: 5MG
Dosage Form/Route: TABLET, CHEWABLE;ORAL
Application: A206793 | Product #001
Applicant: NOVEL LABORATORIES INC
Approved: Mar 8, 2016 | RLD: No | RS: No | Type: OTC